FAERS Safety Report 9275627 (Version 1)
Quarter: 2012Q4

REPORT INFORMATION
  Report Type: Spontaneous
  Country: IT (occurrence: None)
  Receive Date: 20121109
  Receipt Date: 20121109
  Transmission Date: 20130627
  Serious: Yes (Other)
  Sender: FDA-Public Use
  Company Number: 2011S1000765

PATIENT
  Age: 61 Year
  Sex: Male

DRUGS (7)
  1. CUBICIN (DAPTOMYCIN) [Suspect]
     Route: 042
  2. FLUCONAZOLE [Suspect]
     Dosage: Q24H
  3. ALL OTHER THERAPEUTIC PRODUCTS [Suspect]
     Dosage: Q24H
  4. AMPHOTERICIN B [Suspect]
     Dosage: Q24H
  5. PIPERACILLIN W/TAZOBACTAM [Concomitant]
  6. LINEZOLID [Concomitant]
  7. LEVOFLOXACIN [Concomitant]

REACTIONS (2)
  - Thrombophlebitis septic [None]
  - Systemic candida [None]
